FAERS Safety Report 9695138 (Version 4)
Quarter: 2013Q4

REPORT INFORMATION
  Report Type: Spontaneous
  Country: JP (occurrence: JP)
  Receive Date: 20131119
  Receipt Date: 20131220
  Transmission Date: 20140711
  Serious: Yes (Life-Threatening, Hospitalization)
  Sender: FDA-Public Use
  Company Number: JP-JNJFOC-20131110439

PATIENT
  Age: 79 Year
  Sex: Female

DRUGS (8)
  1. TRAMCET [Suspect]
     Indication: POST HERPETIC NEURALGIA
     Route: 048
     Dates: start: 20130520, end: 20130527
  2. TRAMCET [Suspect]
     Indication: POST HERPETIC NEURALGIA
     Route: 048
     Dates: start: 20130304, end: 20130519
  3. TRAMCET [Suspect]
     Indication: PAIN
     Route: 048
     Dates: start: 20130520, end: 20130527
  4. TRAMCET [Suspect]
     Indication: PAIN
     Route: 048
     Dates: start: 20130304, end: 20130519
  5. LYRICA [Concomitant]
     Indication: PAIN
     Dosage: ONCE A DAY
     Route: 048
     Dates: end: 20130527
  6. CARDENALIN [Concomitant]
     Indication: PAIN
     Dosage: ONCE A DAY
     Route: 048
     Dates: end: 20130527
  7. MEVALOTIN [Concomitant]
     Indication: HYPERLIPIDAEMIA
     Dosage: ONCE A DAY
     Route: 048
     Dates: end: 20130527
  8. MUCODYNE [Concomitant]
     Indication: PRODUCTIVE COUGH
     Dosage: ONCE A DAY
     Route: 048
     Dates: end: 20130527

REACTIONS (1)
  - Liver disorder [Recovered/Resolved]
